FAERS Safety Report 11062836 (Version 2)
Quarter: 2015Q2

REPORT INFORMATION
  Report Type: Spontaneous
  Country: GB (occurrence: None)
  Receive Date: 20150422
  Receipt Date: 20150528
  Transmission Date: 20150821
  Serious: Yes (Hospitalization)
  Sender: FDA-Public Use
  Company Number: FK201501824

PATIENT
  Age: 70 Year
  Sex: Female

DRUGS (12)
  1. DEXAMETHASONE (DEXAMETHASONE) (DEXAMETHASONE) [Suspect]
     Active Substance: DEXAMETHASONE
     Indication: SUPERIOR VENA CAVA OCCLUSION
     Route: 048
     Dates: start: 20150207, end: 20150216
  2. CANDESARTAN (CANDESARTAN) [Concomitant]
     Active Substance: CANDESARTAN
  3. CO-AMOXICLAV (AUGMENTIN /00756801/) [Concomitant]
  4. COLOFAC (MEBEVERINE EMBONATE) [Concomitant]
  5. LETROZOLE (MANUFACTURER UNKNOWN) (LETROZOLE) (LETROZOLE) [Suspect]
     Active Substance: LETROZOLE
     Indication: BREAST CANCER
     Dates: start: 20141222, end: 20150202
  6. ESOMEPRAZOLE (ESOMEPRAZOLE) [Concomitant]
     Active Substance: ESOMEPRAZOLE
  7. AMLODIPINE [Concomitant]
     Active Substance: AMLODIPINE BESYLATE
  8. MULTIVITAMIN (PYRIDOXINE HYDROCHLORIDE W/RETINOL/RIBOFLAVIN) [Concomitant]
  9. DALTEPARIN [Concomitant]
     Active Substance: DALTEPARIN
  10. AZD2281 [Suspect]
     Active Substance: OLAPARIB
     Indication: BREAST CANCER
     Route: 048
     Dates: start: 20141212, end: 20141215
  11. ATORVASTATIN (ATORVASTATIN) [Concomitant]
     Active Substance: ATORVASTATIN
  12. DIFFLAM (BENZYDAMINE HYDROCHLORIDE) [Concomitant]

REACTIONS (2)
  - Delirium [None]
  - Cognitive disorder [None]

NARRATIVE: CASE EVENT DATE: 20150219
